FAERS Safety Report 23887819 (Version 1)
Quarter: 2024Q2

REPORT INFORMATION
  Report Type: Spontaneous
  Country: MX (occurrence: MX)
  Receive Date: 20240523
  Receipt Date: 20240523
  Transmission Date: 20240716
  Serious: Yes (Other)
  Sender: FDA-Public Use
  Company Number: MX-VANTIVE-2024VAN017070

PATIENT
  Age: 47 Year
  Sex: Female

DRUGS (1)
  1. DIANEAL W/ DEXTROSE 1.5% [Suspect]
     Active Substance: CALCIUM CHLORIDE\DEXTROSE\MAGNESIUM CHLORIDE\SODIUM CHLORIDE\SODIUM LACTATE
     Indication: Peritoneal dialysis
     Dosage: 2L
     Route: 033
     Dates: start: 2023, end: 202405

REACTIONS (2)
  - Pulmonary oedema [Recovering/Resolving]
  - Oedema [Recovering/Resolving]
